FAERS Safety Report 19410323 (Version 1)
Quarter: 2021Q2

REPORT INFORMATION
  Report Type: Other
  Country: US (occurrence: US)
  Receive Date: 20210614
  Receipt Date: 20210614
  Transmission Date: 20210717
  Serious: Yes (Other)
  Sender: FDA-Public Use
  Company Number: US-ROCHE-2847760

PATIENT
  Age: 44 Year
  Sex: Male

DRUGS (3)
  1. HEPARIN SODIUM. [Concomitant]
     Active Substance: HEPARIN SODIUM
     Indication: ARTERIAL THROMBOSIS
     Dosage: INTRAVENOUS?HEPARIN
     Route: 042
  2. ACTILYSE [Suspect]
     Active Substance: ALTEPLASE
     Indication: ARTERIAL THROMBOSIS
     Route: 065
  3. TESTOSTERONE. [Concomitant]
     Active Substance: TESTOSTERONE
     Indication: PRODUCT USED FOR UNKNOWN INDICATION
     Dosage: WEEKLY INTRAMUSCULAR
     Route: 030

REACTIONS (2)
  - Therapeutic product effect incomplete [Unknown]
  - Penile erosion [Unknown]
